FAERS Safety Report 5166651-4 (Version None)
Quarter: 2006Q4

REPORT INFORMATION
  Report Type: 
  Country: None (occurrence: None)
  Receive Date: 20061129
  Receipt Date: 20061117
  Transmission Date: 20070319
  Serious: Yes (Other)
  Sender: FDA-Public Use
  Company Number: RU-2006-035750

PATIENT
  Age: 29 Year
  Sex: Female

DRUGS (1)
  1. MIRENA [Suspect]
     Indication: CONTRACEPTION
     Dosage: 20 UG/DAY, CONT, INTRA-UTERINE
     Route: 015
     Dates: start: 20061109, end: 20061112

REACTIONS (4)
  - DERMATITIS ALLERGIC [None]
  - EYE OEDEMA [None]
  - FACE OEDEMA [None]
  - TOXIC SKIN ERUPTION [None]
